FAERS Safety Report 9928714 (Version 1)
Quarter: 2014Q1

REPORT INFORMATION
  Report Type: Spontaneous
  Country: US (occurrence: US)
  Receive Date: 20140227
  Receipt Date: 20140227
  Transmission Date: 20141002
  Serious: Yes (Death, Life-Threatening, Hospitalization, Congenital Anomaly, Other)
  Sender: FDA-Public Use
  Company Number: US-ELI_LILLY_AND_COMPANY-US201402007635

PATIENT
  Age: 0 Day
  Sex: 0

DRUGS (1)
  1. PROZAC [Suspect]
     Indication: PRODUCT USED FOR UNKNOWN INDICATION
     Dosage: 1 DF, UNKNOWN
     Route: 064

REACTIONS (14)
  - Cardio-respiratory arrest [Fatal]
  - Superior vena cava syndrome [Fatal]
  - Vena cava thrombosis [Fatal]
  - Pneumothorax [Fatal]
  - Pleural effusion [Fatal]
  - Serratia infection [Fatal]
  - Hypoplastic left heart syndrome [Fatal]
  - Congenital aortic atresia [Fatal]
  - Atrial septal defect [Fatal]
  - Patent ductus arteriosus [Fatal]
  - Mitral valve atresia [Fatal]
  - Haematochezia [Unknown]
  - Premature baby [Unknown]
  - Foetal exposure during pregnancy [Unknown]
